FAERS Safety Report 7310286-1 (Version None)
Quarter: 2011Q1

REPORT INFORMATION
  Report Type: 
  Country: None (occurrence: None)
  Receive Date: 20110224
  Receipt Date: 20110216
  Transmission Date: 20110831
  Serious: Yes (Other)
  Sender: FDA-Public Use
  Company Number: US-US-EMD SERONO, INC.-7000552

PATIENT
  Sex: Female
  Weight: 43 kg

DRUGS (3)
  1. ASPIRIN [Concomitant]
  2. HYDROCHLOROTHIAZIDE [Concomitant]
     Indication: HYPERTENSION
  3. REBIF [Suspect]
     Indication: MULTIPLE SCLEROSIS
     Route: 058
     Dates: start: 20100210, end: 20100101

REACTIONS (4)
  - OPTIC NEURITIS [None]
  - MULTIPLE SCLEROSIS RELAPSE [None]
  - PAIN [None]
  - NAUSEA [None]
